FAERS Safety Report 7221022-1 (Version None)
Quarter: 2011Q1

REPORT INFORMATION
  Report Type: 
  Country: None (occurrence: None)
  Receive Date: 20110103
  Receipt Date: 20101222
  Transmission Date: 20110831
  Serious: Yes (Other)
  Sender: FDA-Public Use
  Company Number: 2010SP047542

PATIENT
  Age: 65 Year
  Sex: Male
  Weight: 57.5 kg

DRUGS (8)
  1. NOVORAPID [Concomitant]
  2. LOPEMIN [Concomitant]
  3. PEG-INTRON [Suspect]
     Indication: HEPATITIS C
     Dosage: 80 MCG; QW; SC
     Route: 058
     Dates: start: 20091228, end: 20100506
  4. REBETOL [Suspect]
     Indication: HEPATITIS C
     Dosage: (600 MG; QD; PO) (200 MG; QD; PO)
     Route: 048
     Dates: start: 20100430, end: 20100506
  5. REBETOL [Suspect]
     Indication: HEPATITIS C
     Dosage: (600 MG; QD; PO) (200 MG; QD; PO)
     Route: 048
     Dates: start: 20091211, end: 20100422
  6. FERON (INTERFERON) [Suspect]
     Indication: HEPATITIS C
     Dosage: (600 MIU; BID; INDRP) (600 MIU; QD; INDRP)
     Dates: start: 20091219, end: 20091224
  7. FERON (INTERFERON) [Suspect]
     Indication: HEPATITIS C
     Dosage: (600 MIU; BID; INDRP) (600 MIU; QD; INDRP)
     Dates: start: 20091211, end: 20091218
  8. LOXONIN [Concomitant]

REACTIONS (3)
  - INSOMNIA [None]
  - NEPHROTIC SYNDROME [None]
  - FUNDOSCOPY ABNORMAL [None]
